FAERS Safety Report 7617125-X (Version None)
Quarter: 2011Q3

REPORT INFORMATION
  Report Type: 
  Country: None (occurrence: None)
  Receive Date: 20110718
  Receipt Date: 20110705
  Transmission Date: 20111222
  Serious: Yes (Hospitalization)
  Sender: FDA-Public Use
  Company Number: CA-JNJFOC-20110703097

PATIENT
  Sex: Female
  Weight: 71.5 kg

DRUGS (2)
  1. COUMADIN [Concomitant]
  2. REMICADE [Suspect]
     Indication: CROHN'S DISEASE
     Route: 042

REACTIONS (2)
  - PULMONARY EMBOLISM [None]
  - PSEUDOCYST [None]
